FAERS Safety Report 7294940-6 (Version None)
Quarter: 2011Q1

REPORT INFORMATION
  Report Type: 
  Country: None (occurrence: None)
  Receive Date: 20110216
  Receipt Date: 20110211
  Transmission Date: 20110831
  Serious: Yes (Other)
  Sender: FDA-Public Use
  Company Number: US-SANOFI-AVENTIS-2011SA009669

PATIENT
  Age: 45 Year
  Sex: Female

DRUGS (1)
  1. LOVENOX [Suspect]
     Route: 065
     Dates: start: 20110211, end: 20110211

REACTIONS (2)
  - PRODUCT QUALITY ISSUE [None]
  - INJURY ASSOCIATED WITH DEVICE [None]
